FAERS Safety Report 5656330-9 (Version None)
Quarter: 2008Q1

REPORT INFORMATION
  Report Type: 
  Country: None (occurrence: None)
  Receive Date: 20080309
  Receipt Date: 20071129
  Transmission Date: 20080703
  Serious: No
  Sender: FDA-Public Use
  Company Number: US-BAYER-200713965BCC

PATIENT
  Age: 49 Year
  Sex: Male
  Weight: 79 kg

DRUGS (3)
  1. ALEVE [Suspect]
     Indication: BURSITIS
     Dosage: TOTAL DAILY DOSE: 880 MG  UNIT DOSE: 220 MG
     Route: 048
     Dates: start: 20071121, end: 20071123
  2. ALEVE [Suspect]
     Dosage: TOTAL DAILY DOSE: 880 MG  UNIT DOSE: 220 MG
     Route: 048
     Dates: start: 20071126, end: 20071128
  3. ADVAIR DISKUS 100/50 [Concomitant]

REACTIONS (1)
  - PRURITUS [None]
